FAERS Safety Report 14974667 (Version 3)
Quarter: 2018Q3

REPORT INFORMATION
  Report Type: Report from Study
  Country: AU (occurrence: AU)
  Receive Date: 20180605
  Receipt Date: 20180906
  Transmission Date: 20181010
  Serious: Yes (Hospitalization)
  Sender: FDA-Public Use
  Company Number: AU-SA-2017SA255411

PATIENT
  Age: 67 Year
  Sex: Male

DRUGS (10)
  1. CLEXANE [Suspect]
     Active Substance: ENOXAPARIN SODIUM
     Indication: SUBCLAVIAN VEIN THROMBOSIS
     Dosage: 80 MG,BID
     Route: 058
     Dates: start: 20171024, end: 20180102
  2. ATIVAN [Concomitant]
     Active Substance: LORAZEPAM
     Dosage: UNK UNK,UNK
     Route: 065
     Dates: start: 201706
  3. ESOMEPRAZOLE [Concomitant]
     Active Substance: ESOMEPRAZOLE
     Dosage: UNK UNK,UNK
     Route: 065
     Dates: start: 2016
  4. SAR439684 [Suspect]
     Active Substance: CEMIPLIMAB
     Indication: NON-SMALL CELL LUNG CANCER
     Dosage: 350 MG, Q3W
     Route: 042
     Dates: start: 20171031
  5. PARACETAMOL [Concomitant]
     Active Substance: ACETAMINOPHEN
     Dosage: UNK UNK,UNK
     Route: 065
     Dates: start: 20171029
  6. PIPERACILLIN SODIUM/TAZOBACTAM SODIUM [Suspect]
     Active Substance: PIPERACILLIN SODIUM\TAZOBACTAM SODIUM
     Dosage: 4.5 G,QID
     Route: 042
     Dates: start: 20171107, end: 20171113
  7. OXAZEPAM. [Concomitant]
     Active Substance: OXAZEPAM
     Dosage: UNK, UNK
     Dates: start: 20171107, end: 20171117
  8. DEXAMETHASONE. [Concomitant]
     Active Substance: DEXAMETHASONE
     Dosage: UNK UNK,UNK
     Route: 065
     Dates: start: 20171012, end: 20171030
  9. NORMAL SALINE [Concomitant]
     Active Substance: SODIUM CHLORIDE
     Dosage: UNK UNK, UNK
     Dates: start: 20171108, end: 20171108
  10. ENDONE [Concomitant]
     Active Substance: OXYCODONE HYDROCHLORIDE
     Dosage: UNK UNK, UNK
     Dates: start: 20171107, end: 20171107

REACTIONS (3)
  - Pyrexia [Recovered/Resolved]
  - Iron deficiency anaemia [Recovered/Resolved]
  - Diarrhoea [Recovered/Resolved]

NARRATIVE: CASE EVENT DATE: 20171101
